FAERS Safety Report 10498006 (Version 1)
Quarter: 2014Q4

REPORT INFORMATION
  Report Type: Spontaneous
  Country: US (occurrence: None)
  Receive Date: 20141002
  Receipt Date: 20141002
  Transmission Date: 20150528
  Serious: Yes (Other)
  Sender: FDA-Public Use
  Company Number: 201409147

PATIENT
  Age: 61 Year
  Sex: Male

DRUGS (1)
  1. TESTIM [Suspect]
     Active Substance: TESTOSTERONE
     Indication: BLOOD TESTOSTERONE DECREASED
     Route: 062
     Dates: end: 20120920

REACTIONS (10)
  - Asthenia [None]
  - Anhedonia [None]
  - Economic problem [None]
  - Anxiety [None]
  - Affective disorder [None]
  - Heart injury [None]
  - Cardiac failure congestive [None]
  - Fear [None]
  - Pain [None]
  - Myocardial infarction [None]

NARRATIVE: CASE EVENT DATE: 20120920
